FAERS Safety Report 22275602 (Version 4)
Quarter: 2023Q2

REPORT INFORMATION
  Report Type: Spontaneous
  Country: US (occurrence: US)
  Receive Date: 20230502
  Receipt Date: 20230526
  Transmission Date: 20230722
  Serious: No
  Sender: FDA-Public Use
  Company Number: US-SA-SAC20230430000166

PATIENT
  Age: 81 Year
  Sex: Male

DRUGS (1)
  1. DUPIXENT [Suspect]
     Active Substance: DUPILUMAB
     Indication: Dermatitis atopic
     Dosage: 300 MG, QOW
     Route: 058
     Dates: start: 202301

REACTIONS (7)
  - Eczema eyelids [Unknown]
  - Erythema [Not Recovered/Not Resolved]
  - Pruritus [Not Recovered/Not Resolved]
  - Ocular hyperaemia [Unknown]
  - Conjunctivitis [Not Recovered/Not Resolved]
  - Eye inflammation [Unknown]
  - Eye irritation [Unknown]

NARRATIVE: CASE EVENT DATE: 20230101
